FAERS Safety Report 12816191 (Version 3)
Quarter: 2019Q3

REPORT INFORMATION
  Report Type: Spontaneous
  Country: US (occurrence: US)
  Receive Date: 20161006
  Receipt Date: 20190923
  Transmission Date: 20191004
  Serious: No
  Sender: FDA-Public Use
  Company Number: US-NOVEN PHARMACEUTICALS, INC.-US2015000669

PATIENT

DRUGS (3)
  1. COMBIPATCH [Suspect]
     Active Substance: ESTRADIOL\NORETHINDRONE ACETATE
     Indication: NIGHT SWEATS
     Dosage: 50/140 MG, UNKNOWN
     Route: 062
  2. COMBIPATCH [Suspect]
     Active Substance: ESTRADIOL\NORETHINDRONE ACETATE
     Indication: HOT FLUSH
     Dosage: 0.05/0.14 MG, UNKNOWN
     Route: 062
     Dates: start: 20150520
  3. COMBIPATCH [Suspect]
     Active Substance: ESTRADIOL\NORETHINDRONE ACETATE
     Dosage: 0.05/0.14 MG, UNKNOWN
     Route: 062

REACTIONS (5)
  - Product adhesion issue [Unknown]
  - Metrorrhagia [Recovered/Resolved]
  - Hot flush [Recovered/Resolved]
  - Drug ineffective [Recovered/Resolved]
  - Night sweats [Recovered/Resolved]

NARRATIVE: CASE EVENT DATE: 2015
